FAERS Safety Report 9355364 (Version 1)
Quarter: 2013Q2

REPORT INFORMATION
  Report Type: Report from Study
  Country: CA (occurrence: CA)
  Receive Date: 20130619
  Receipt Date: 20130619
  Transmission Date: 20140414
  Serious: Yes (Other)
  Sender: FDA-Public Use
  Company Number: CA-JNJFOC-20130600842

PATIENT
  Age: 23 Year
  Sex: Female
  Weight: 52.1 kg

DRUGS (8)
  1. REMICADE [Suspect]
     Indication: CROHN^S DISEASE
     Route: 042
  2. REMICADE [Suspect]
     Indication: CROHN^S DISEASE
     Route: 042
     Dates: start: 20130306
  3. BENADRYL [Concomitant]
     Indication: PREMEDICATION
     Route: 042
  4. SOLUCORTEF [Concomitant]
     Indication: PREMEDICATION
     Route: 042
  5. TYLENOL [Concomitant]
     Indication: PREMEDICATION
     Route: 048
  6. METHADONE [Concomitant]
     Route: 065
  7. CIPRO [Concomitant]
     Route: 065
  8. SEROQUEL [Concomitant]
     Route: 065

REACTIONS (2)
  - Vaginal cyst [Recovering/Resolving]
  - Drug ineffective [Not Recovered/Not Resolved]
